FAERS Safety Report 24214992 (Version 1)
Quarter: 2024Q3

REPORT INFORMATION
  Report Type: Spontaneous
  Country: PK (occurrence: PK)
  Receive Date: 20240815
  Receipt Date: 20240815
  Transmission Date: 20241016
  Serious: Yes (Other)
  Sender: AMGEN
  Company Number: PK-PFIZER INC-2019452477

PATIENT
  Age: 21 Year
  Sex: Female
  Weight: 68 kg

DRUGS (11)
  1. ENBREL [Suspect]
     Active Substance: BENZYL ALCOHOL\ETANERCEPT
     Indication: Juvenile idiopathic arthritis
     Dosage: UNK
     Route: 065
     Dates: start: 2017
  2. ENBREL [Suspect]
     Active Substance: BENZYL ALCOHOL\ETANERCEPT
     Dosage: UNK
     Route: 065
     Dates: start: 20191025
  3. ENBREL [Suspect]
     Active Substance: BENZYL ALCOHOL\ETANERCEPT
     Dosage: 50 MG, EVERY 2 WEEKS
     Route: 065
  4. ENBREL [Suspect]
     Active Substance: BENZYL ALCOHOL\ETANERCEPT
     Dosage: 50 MG, CYCLIC (EVERY 4 WEEKS )
     Route: 058
  5. ENBREL [Suspect]
     Active Substance: BENZYL ALCOHOL\ETANERCEPT
     Dosage: 50 MG CYCLIC (EVERY 3 WEEKS)
     Route: 058
     Dates: start: 202109
  6. ENBREL [Suspect]
     Active Substance: BENZYL ALCOHOL\ETANERCEPT
     Dosage: 40 MG, EVERY 3 WEEK
     Route: 058
     Dates: start: 20220311
  7. Berica [Concomitant]
     Indication: Product used for unknown indication
     Dosage: 60MG, 1-0-0, IN MORNING
     Route: 065
  8. CALSAN-DOS [Concomitant]
     Indication: Product used for unknown indication
     Dosage: UNK, 1X/DAY
  9. DURAGESIC [Concomitant]
     Active Substance: FENTANYL
     Indication: Product used for unknown indication
     Dosage: 1+1+1, AS NEEDED
     Route: 065
  10. NUBEROL [Concomitant]
     Indication: Product used for unknown indication
     Dosage: 1+1+1 X FOR 3 DAYS THEN ILLEGIBLE
     Route: 065
  11. VITAMIN D2 [Concomitant]
     Active Substance: ERGOCALCIFEROL
     Indication: Product used for unknown indication
     Dosage: 1+0+0, MORNING
     Route: 065

REACTIONS (7)
  - Osteonecrosis [Unknown]
  - Arthralgia [Unknown]
  - Red blood cell sedimentation rate increased [Unknown]
  - Joint swelling [Unknown]
  - Off label use [Unknown]
  - Off label use [Unknown]
  - Intentional product misuse [Unknown]

NARRATIVE: CASE EVENT DATE: 20220311
